FAERS Safety Report 6424115-1 (Version None)
Quarter: 2009Q4

REPORT INFORMATION
  Report Type: 
  Country: None (occurrence: None)
  Receive Date: 20091102
  Receipt Date: 20091019
  Transmission Date: 20100525
  Serious: Yes (Other)
  Sender: FDA-Public Use
  Company Number: IT-MYLANLABS-2009S1017455

PATIENT
  Sex: Female

DRUGS (2)
  1. RISPERIDONE [Suspect]
     Indication: PSYCHOTIC DISORDER
     Route: 048
     Dates: start: 20090530
  2. RISPERIDONE [Suspect]
     Route: 048
     Dates: start: 20090530

REACTIONS (2)
  - ACUTE PSYCHOSIS [None]
  - DRUG INEFFECTIVE [None]
